FAERS Safety Report 11755032 (Version 2)
Quarter: 2016Q3

REPORT INFORMATION
  Report Type: Report from Study
  Country: US (occurrence: US)
  Receive Date: 20151119
  Receipt Date: 20160920
  Transmission Date: 20161109
  Serious: Yes (Hospitalization, Other)
  Sender: FDA-Public Use
  Company Number: US-PFIZER INC-2015297334

PATIENT
  Age: 14 Year
  Sex: Female
  Weight: 59 kg

DRUGS (20)
  1. DOXORUBICIN HCL [Suspect]
     Active Substance: DOXORUBICIN HYDROCHLORIDE
     Dosage: 84 MG (TOTAL DOSE)
     Route: 042
     Dates: end: 20141221
  2. METHOTREXATE SODIUM. [Suspect]
     Active Substance: METHOTREXATE SODIUM
     Indication: ANAPLASTIC LARGE CELL LYMPHOMA T- AND NULL-CELL TYPES
     Dosage: 7.5-12MG, PROPHASE (CYCLE = 5 DAYS), ON DAY 1 (AGE BASED DOSING)
     Route: 037
     Dates: start: 201410, end: 201412
  3. METHOTREXATE SODIUM. [Suspect]
     Active Substance: METHOTREXATE SODIUM
     Dosage: 3000 MG/M2, COURSE A: OVER 3 HOURS ON DAY 1
     Route: 042
     Dates: start: 201410, end: 201412
  4. DEXAMETHASONE. [Suspect]
     Active Substance: DEXAMETHASONE
     Dosage: 5MG/M2 COURSE B: BID ON DAYS 1-5
     Route: 048
     Dates: start: 201410, end: 201412
  5. CRIZOTINIB [Suspect]
     Active Substance: CRIZOTINIB
     Indication: ANAPLASTIC LARGE CELL LYMPHOMA T- AND NULL-CELL TYPES
     Dosage: 165 MG/M2, BID ON DAYS 1-21 (TOTAL DOSE 2500 MG)
     Route: 048
     Dates: end: 20141222
  6. CYCLOPHOSPHAMIDE. [Suspect]
     Active Substance: CYCLOPHOSPHAMIDE
     Indication: ANAPLASTIC LARGE CELL LYMPHOMA T- AND NULL-CELL TYPES
     Dosage: 200 MG/M2, PROPHASE (CYCLE = 5 DAYS), OVER 15-30 MINUTES ON DAYS 1 AND 2
     Route: 042
     Dates: start: 201410, end: 201412
  7. CYCLOPHOSPHAMIDE. [Suspect]
     Active Substance: CYCLOPHOSPHAMIDE
     Dosage: 200 MG/M2, COURSE B: OVER 15-30 MINUTES ON DAYS 1-5
     Route: 042
     Dates: start: 201410, end: 201412
  8. VP-16 [Suspect]
     Active Substance: ETOPOSIDE
     Indication: ANAPLASTIC LARGE CELL LYMPHOMA T- AND NULL-CELL TYPES
     Dosage: 100 MG/M2, COURSE A: OVER 2 HOURS ON DAYS 4 AND 5
     Route: 042
     Dates: start: 201410, end: 201412
  9. DEXAMETHASONE. [Suspect]
     Active Substance: DEXAMETHASONE
     Dosage: 85 MG (TOTAL DOSE)
     Route: 048
     Dates: start: 20141217, end: 20141221
  10. HYDROCORTISONE. [Concomitant]
     Active Substance: HYDROCORTISONE
     Indication: ANAPLASTIC LARGE CELL LYMPHOMA T- AND NULL-CELL TYPES
     Dosage: 7.5-12MG, PROPHASE (CYCLE = 5 DAYS), ON DAY 1 (AGE BASED DOSING)
     Route: 037
     Dates: start: 201410, end: 201412
  11. IFOSFAMIDE. [Concomitant]
     Active Substance: IFOSFAMIDE
     Indication: ANAPLASTIC LARGE CELL LYMPHOMA T- AND NULL-CELL TYPES
     Dosage: 800 MG/M2, COURSE A: OVER 60 MIN ON DAYS 1-5
     Route: 042
     Dates: start: 201410, end: 201412
  12. DOXORUBICIN HCL [Suspect]
     Active Substance: DOXORUBICIN HYDROCHLORIDE
     Indication: ANAPLASTIC LARGE CELL LYMPHOMA T- AND NULL-CELL TYPES
     Dosage: 25 MG/M2, COURSE B: OVER 1-15 MIN ON DAYS 4 AND 5
     Route: 042
     Dates: start: 201410, end: 201412
  13. CYTARABINE. [Concomitant]
     Active Substance: CYTARABINE
     Dosage: 150 MG/M2, COURSE A: OVER 1-30 MINUTES Q12 HOURS ON DAYS 4 AND 5 (TOTAL 4 DOSES)
     Route: 042
     Dates: start: 201410, end: 201412
  14. METHOTREXATE SODIUM. [Suspect]
     Active Substance: METHOTREXATE SODIUM
     Dosage: 3000 MG/M2, COURSE B: OVER 3 HOURS ON DAY 1
     Route: 042
     Dates: start: 201410, end: 201412
  15. METHOTREXATE SODIUM. [Suspect]
     Active Substance: METHOTREXATE SODIUM
     Dosage: 5070 MG (TOTAL DOSE)
     Dates: start: 20141218, end: 20141218
  16. ONDANSETRON [Suspect]
     Active Substance: ONDANSETRON
  17. CYCLOPHOSPHAMIDE. [Suspect]
     Active Substance: CYCLOPHOSPHAMIDE
     Dosage: 1700 MG (TOTAL DOSE)
     Route: 042
     Dates: start: 20141217, end: 20141221
  18. CYTARABINE. [Concomitant]
     Active Substance: CYTARABINE
     Indication: ANAPLASTIC LARGE CELL LYMPHOMA T- AND NULL-CELL TYPES
     Dosage: 15-24MG, PROPHASE (CYCLE = 5 DAYS), ON DAY 1 (AGE BASED DOSING)
     Route: 037
     Dates: start: 201410, end: 201412
  19. DEXAMETHASONE. [Suspect]
     Active Substance: DEXAMETHASONE
     Indication: ANAPLASTIC LARGE CELL LYMPHOMA T- AND NULL-CELL TYPES
     Dosage: 5 MG/M2, PROPHASE (CYCLE = 5 DAYS): QD ON DAYS 1-2, AND 5MG/M2 PO BID ON DAYS 3-5
     Route: 048
     Dates: start: 201410, end: 201412
  20. DEXAMETHASONE. [Suspect]
     Active Substance: DEXAMETHASONE
     Dosage: 5 MG/M2, COURSE A: BID ON DAYS 1-5
     Route: 048
     Dates: start: 201410, end: 201412

REACTIONS (3)
  - Electrocardiogram QT prolonged [Recovered/Resolved]
  - Hypotension [Unknown]
  - Sepsis [Unknown]

NARRATIVE: CASE EVENT DATE: 20141221
